FAERS Safety Report 23450979 (Version 11)
Quarter: 2024Q2

REPORT INFORMATION
  Report Type: Spontaneous
  Country: CA (occurrence: CA)
  Receive Date: 20240129
  Receipt Date: 20240412
  Transmission Date: 20240715
  Serious: Yes (Hospitalization)
  Sender: FDA-Public Use
  Company Number: CA-CELLTRION INC.-2023CA020657

PATIENT

DRUGS (11)
  1. INFLECTRA [Suspect]
     Active Substance: INFLIXIMAB-DYYB
     Indication: Colitis ulcerative
     Dosage: 310 MG, 0, 2, 6 THEN EVERY 8 WEEKS
     Route: 042
     Dates: start: 20231013
  2. INFLECTRA [Suspect]
     Active Substance: INFLIXIMAB-DYYB
     Dosage: 350 MG (RESCUE DOSE)
     Route: 042
     Dates: start: 20231017
  3. INFLECTRA [Suspect]
     Active Substance: INFLIXIMAB-DYYB
     Dosage: 350 MG (RESCUE DOSE)
     Route: 042
     Dates: start: 20231024
  4. INFLECTRA [Suspect]
     Active Substance: INFLIXIMAB-DYYB
     Dosage: 310 MG, WEEK 6 AFTER INITIAL DOSE
     Route: 042
     Dates: start: 20231124
  5. INFLECTRA [Suspect]
     Active Substance: INFLIXIMAB-DYYB
     Dosage: 310 MG, AFTER 8 WEEKS
     Route: 042
     Dates: start: 20240119
  6. INFLECTRA [Suspect]
     Active Substance: INFLIXIMAB-DYYB
     Dosage: 350 MG, INCOMPLETE, 5 WEEKS, PRESCRIBED EVERY 4 WEEKS
     Route: 042
     Dates: start: 20240224
  7. ANODAN-HC [Concomitant]
     Dosage: 1 DF
  8. INSULIN NOS [Concomitant]
     Active Substance: INSULIN NOS
     Dosage: 1 DF
  9. METOCLOPRAMIDE [Concomitant]
     Active Substance: METOCLOPRAMIDE
     Dosage: 1 DF
  10. PREDNISONE [Concomitant]
     Active Substance: PREDNISONE
     Dosage: 5 MG. 7 TABS, REDUCTION EVERY 3 DAYS BY 1 TAB
     Route: 048
     Dates: start: 20231020
  11. LIOTHYRONINE SODIUM [Concomitant]
     Active Substance: LIOTHYRONINE SODIUM
     Dosage: 1 DF

REACTIONS (19)
  - Neuralgia [Unknown]
  - Diabetic neuropathy [Unknown]
  - Condition aggravated [Unknown]
  - Polyneuropathy [Unknown]
  - Therapeutic response shortened [Unknown]
  - Hot flush [Unknown]
  - Pain [Unknown]
  - Abdominal discomfort [Recovering/Resolving]
  - Nausea [Recovered/Resolved]
  - White blood cell count decreased [Unknown]
  - Chills [Recovered/Resolved]
  - Hyperhidrosis [Recovered/Resolved]
  - Back pain [Recovering/Resolving]
  - Paraesthesia [Recovering/Resolving]
  - Rash [Unknown]
  - Vomiting [Recovered/Resolved]
  - Pallor [Unknown]
  - Blood glucose increased [Recovering/Resolving]
  - Off label use [Unknown]

NARRATIVE: CASE EVENT DATE: 20230101
